FAERS Safety Report 9242636 (Version 1)
Quarter: 2013Q2

REPORT INFORMATION
  Report Type: Spontaneous
  Country: JP (occurrence: JP)
  Receive Date: 20130419
  Receipt Date: 20130419
  Transmission Date: 20140414
  Serious: Yes (Life-Threatening)
  Sender: FDA-Public Use
  Company Number: JP-CUBIST PHARMACEUTICALS, INC.-2013CBST000275

PATIENT
  Age: 79 Year
  Sex: Male

DRUGS (1)
  1. CUBICIN [Suspect]
     Indication: PRODUCT USED FOR UNKNOWN INDICATION
     Route: 041

REACTIONS (4)
  - Hepatitis fulminant [Recovering/Resolving]
  - Alanine aminotransferase increased [Recovering/Resolving]
  - Aspartate aminotransferase increased [Recovering/Resolving]
  - Blood lactate dehydrogenase increased [Recovering/Resolving]
